FAERS Safety Report 20689276 (Version 2)
Quarter: 2022Q2

REPORT INFORMATION
  Report Type: Spontaneous
  Country: US (occurrence: US)
  Receive Date: 20220408
  Receipt Date: 20220427
  Transmission Date: 20220721
  Serious: Yes (Death, Hospitalization, Other)
  Sender: FDA-Public Use
  Company Number: US-GLAXOSMITHKLINE-US2022060057

PATIENT
  Age: 68 Year
  Sex: Male
  Weight: 58.97 kg

DRUGS (1)
  1. TRELEGY ELLIPTA [Suspect]
     Active Substance: FLUTICASONE FUROATE\UMECLIDINIUM BROMIDE\VILANTEROL TRIFENATATE
     Indication: Chronic obstructive pulmonary disease
     Dosage: UNK UNK, QD
     Dates: end: 20220404

REACTIONS (5)
  - Pneumonia [Fatal]
  - Ill-defined disorder [Fatal]
  - Dysphagia [Unknown]
  - Feeding tube user [Unknown]
  - Poisoning [Unknown]

NARRATIVE: CASE EVENT DATE: 20220322
